FAERS Safety Report 25078735 (Version 1)
Quarter: 2025Q1

REPORT INFORMATION
  Report Type: Spontaneous
  Country: AU (occurrence: None)
  Receive Date: 20250314
  Receipt Date: 20250314
  Transmission Date: 20250409
  Serious: Yes (Other)
  Sender: FDA-CTU
  Company Number: None

PATIENT
  Age: 72 Year
  Sex: Female
  Weight: 61 kg

DRUGS (3)
  1. BIMZELX [Suspect]
     Active Substance: BIMEKIZUMAB-BKZX
     Indication: Dermatitis psoriasiform
     Route: 030
     Dates: start: 20250202, end: 20250302
  2. BIMZELX [Suspect]
     Active Substance: BIMEKIZUMAB-BKZX
     Indication: Psoriatic arthropathy
  3. BIMZELX [Concomitant]
     Active Substance: BIMEKIZUMAB-BKZX
     Dates: start: 20250202, end: 20250302

REACTIONS (11)
  - Mouth swelling [None]
  - Lip swelling [None]
  - Lip blister [None]
  - Oral mucosal blistering [None]
  - Oral pain [None]
  - Asthma [None]
  - Injection site rash [None]
  - Injection site swelling [None]
  - Injection site warmth [None]
  - Injection site paraesthesia [None]
  - Injection site pain [None]

NARRATIVE: CASE EVENT DATE: 20250303
